FAERS Safety Report 25936074 (Version 1)
Quarter: 2025Q4

REPORT INFORMATION
  Report Type: Spontaneous
  Country: BR (occurrence: BR)
  Receive Date: 20251017
  Receipt Date: 20251017
  Transmission Date: 20260118
  Serious: Yes (Other)
  Sender: NOVO NORDISK
  Company Number: BR-NOVOPROD-1539862

PATIENT
  Age: 859 Month
  Sex: Female

DRUGS (1)
  1. NOVOLIN N [Suspect]
     Active Substance: INSULIN HUMAN
     Indication: Diabetes mellitus
     Dosage: 48 IU, QD (18 IU MORNING, 12 IU BEFORE LUNCH, AND 18 IU BEFORE SLEEPING)
     Dates: start: 2025

REACTIONS (4)
  - Diabetic metabolic decompensation [Unknown]
  - Neuropathy peripheral [Unknown]
  - Blood glucose decreased [Unknown]
  - Prescription drug used without a prescription [Unknown]

NARRATIVE: CASE EVENT DATE: 20250101
